FAERS Safety Report 19475361 (Version 2)
Quarter: 2023Q2

REPORT INFORMATION
  Report Type: Spontaneous
  Country: DE (occurrence: DE)
  Receive Date: 20210630
  Receipt Date: 20230406
  Transmission Date: 20230721
  Serious: Yes (Hospitalization)
  Sender: FDA-Public Use
  Company Number: DE-ADRED-06440-01

PATIENT
  Age: 72 Year
  Sex: Female
  Weight: 75 kg

DRUGS (7)
  1. IBUPROFEN [Suspect]
     Active Substance: IBUPROFEN
     Indication: Product used for unknown indication
     Dosage: 600 MG, MAX 3 PRO TAG (MAX 3 PER DAY)
     Route: 048
  2. PREGABALIN [Concomitant]
     Active Substance: PREGABALIN
     Indication: Product used for unknown indication
     Route: 048
  3. Insuman Basal 100I.E./ml Patrone [Concomitant]
     Indication: Product used for unknown indication
     Dosage: NACH BZ, INJEKTIONS-/INFUSIONSL?SUNG (ACCORDING TO BG, INJECTION/INFUSION SOLUTION)
     Route: 058
  4. CAPTOPRIL\HYDROCHLOROTHIAZIDE [Concomitant]
     Active Substance: CAPTOPRIL\HYDROCHLOROTHIAZIDE
     Indication: Product used for unknown indication
     Route: 048
  5. CAPTOPRIL\HYDROCHLOROTHIAZIDE [Concomitant]
     Active Substance: CAPTOPRIL\HYDROCHLOROTHIAZIDE
     Dosage: 50|25 MG, 1-0-0-0, TABLETTE
     Route: 048
  6. METFORMIN [Concomitant]
     Active Substance: METFORMIN HYDROCHLORIDE
     Indication: Product used for unknown indication
     Route: 048
  7. METAMIZOL [Concomitant]
     Active Substance: METAMIZOLE SODIUM
     Indication: Product used for unknown indication
     Dosage: 500 MG, BIS ZU VIERMAL 40TROPFEN, TABLETTEN (500 MG, UP TO FOUR TIMES 40DROPS, TABLETS)
     Route: 048

REACTIONS (3)
  - Musculoskeletal pain [Recovering/Resolving]
  - Peripheral coldness [Recovering/Resolving]
  - Product prescribing error [Unknown]
